FAERS Safety Report 20730219 (Version 1)
Quarter: 2022Q2

REPORT INFORMATION
  Report Type: Spontaneous
  Country: JP (occurrence: JP)
  Receive Date: 20220420
  Receipt Date: 20220420
  Transmission Date: 20220721
  Serious: Yes (Other)
  Sender: FDA-Public Use
  Company Number: JP-PFIZER INC-202200570729

PATIENT

DRUGS (1)
  1. RHEUMATREX [Suspect]
     Active Substance: METHOTREXATE SODIUM
     Indication: Rheumatic disorder
     Dosage: UNK

REACTIONS (1)
  - Colon cancer [Unknown]
